FAERS Safety Report 4897979-0 (Version None)
Quarter: 2006Q1

REPORT INFORMATION
  Report Type: 
  Country: None (occurrence: None)
  Receive Date: 20060130
  Receipt Date: 20060111
  Transmission Date: 20060701
  Serious: Yes (Hospitalization, Disabling)
  Sender: FDA-Public Use
  Company Number: 401271

PATIENT
  Age: 29 Year
  Sex: Female
  Weight: 68 kg

DRUGS (5)
  1. ACCUTANE [Suspect]
     Indication: ROSACEA
     Dosage: 20 MG DAILY ORAL
     Route: 048
     Dates: start: 19961002, end: 19970601
  2. METRONIDAZOLE CREAM (METRONIDAZOLE) [Concomitant]
  3. NOVACET LOTION (SULFACETAMIDE SODIUM/SULFUR) [Concomitant]
  4. SUMYCIN (TETRACYCLINE HYDROCHLORIDE) [Concomitant]
  5. TRI-CYCLEN (ETHINYL ESTRADIOL/NORGESTREL) [Concomitant]

REACTIONS (33)
  - ALOPECIA [None]
  - ANAEMIA [None]
  - ANHEDONIA [None]
  - ANXIETY [None]
  - APHTHOUS STOMATITIS [None]
  - ARTHRITIS [None]
  - COLITIS [None]
  - COLITIS ULCERATIVE [None]
  - CONDITION AGGRAVATED [None]
  - CONSTIPATION [None]
  - CROHN'S DISEASE [None]
  - DEFAECATION URGENCY [None]
  - DRUG EXPOSURE BEFORE PREGNANCY [None]
  - DRY EYE [None]
  - FATIGUE [None]
  - FLATULENCE [None]
  - GASTRITIS [None]
  - GASTROINTESTINAL DISORDER [None]
  - GASTROOESOPHAGEAL REFLUX DISEASE [None]
  - HAEMATOCHEZIA [None]
  - HAEMORRHAGE [None]
  - HAEMORRHOIDS [None]
  - INFLAMMATORY BOWEL DISEASE [None]
  - INJURY [None]
  - INTESTINAL HAEMORRHAGE [None]
  - MULTI-ORGAN DISORDER [None]
  - NASAL DRYNESS [None]
  - NIGHT BLINDNESS [None]
  - OESOPHAGITIS [None]
  - OSTEOPENIA [None]
  - PREGNANCY [None]
  - RECTAL DISCHARGE [None]
  - RECTAL HAEMORRHAGE [None]
